FAERS Safety Report 8761797 (Version 1)
Quarter: 2012Q4

REPORT INFORMATION
  Report Type: Spontaneous
  Country: US (occurrence: None)
  Receive Date: 20120830
  Receipt Date: 20120830
  Transmission Date: 20130627
  Serious: Yes (Other)
  Sender: FDA-Public Use
  Company Number: None

PATIENT
  Sex: Female
  Weight: 89.81 kg

DRUGS (1)
  1. AMIODARONE [Suspect]
     Indication: IRREGULAR HEARTBEAT
     Route: 048
     Dates: start: 201011, end: 20120626

REACTIONS (2)
  - Atypical pneumonia [None]
  - Multiple allergies [None]
